FAERS Safety Report 16225900 (Version 1)
Quarter: 2019Q2

REPORT INFORMATION
  Report Type: Spontaneous
  Country: ES (occurrence: ES)
  Receive Date: 20190423
  Receipt Date: 20190423
  Transmission Date: 20190711
  Serious: Yes (Hospitalization)
  Sender: FDA-Public Use
  Company Number: ES-SUN PHARMACEUTICAL INDUSTRIES LTD-2019RR-205897

PATIENT
  Age: 66 Year
  Sex: Male

DRUGS (4)
  1. LORATADINA (2303A) [Concomitant]
     Indication: CATARRH
     Dosage: ()
     Route: 048
     Dates: start: 20190127, end: 20190129
  2. AZITHROMYCIN ANHYDROUS. [Suspect]
     Active Substance: AZITHROMYCIN ANHYDROUS
     Indication: CATARRH
     Dosage: 1 DOSAGE FORM, DAILY
     Route: 048
     Dates: start: 20190201, end: 20190203
  3. ALGIDOL 650 MG/ 10 MG/ 500 MG GRANULADO PARA SOLUCION ORAL , 12 SOBRES [Concomitant]
     Indication: CATARRH
     Dosage: 1 DOSAGE FORM, TID
     Route: 048
     Dates: start: 20190121, end: 20190131
  4. PAZITAL 37,5 MG/325 MG COMPRIMIDOS RECUBIERTOS CON PELICULA , 20 CO... [Concomitant]
     Indication: PAIN
     Dosage: ()
     Route: 048
     Dates: start: 20190204, end: 20190208

REACTIONS (3)
  - Coagulopathy [Recovered/Resolved]
  - Hyperbilirubinaemia [Recovered/Resolved]
  - Hepatitis [Recovered/Resolved]

NARRATIVE: CASE EVENT DATE: 20190209
